FAERS Safety Report 8743303 (Version 2)
Quarter: 2014Q1

REPORT INFORMATION
  Report Type: Report from Study
  Country: JP (occurrence: JP)
  Receive Date: 20120824
  Receipt Date: 20140222
  Transmission Date: 20141002
  Serious: Yes (Other)
  Sender: FDA-Public Use
  Company Number: JP-BRISTOL-MYERS SQUIBB COMPANY-16865008

PATIENT
  Age: 66 Year
  Sex: Male

DRUGS (4)
  1. REYATAZ [Suspect]
     Indication: HIV INFECTION
     Route: 048
     Dates: start: 20060915
  2. NORVIR [Suspect]
     Indication: HIV INFECTION
     Route: 048
     Dates: start: 20060915
  3. EPZICOM [Suspect]
     Indication: HIV INFECTION
     Dosage: 1DF: 1TAB
     Route: 048
     Dates: start: 20070627
  4. DEPAKENE [Concomitant]
     Indication: CONVULSION PROPHYLAXIS
     Route: 048
     Dates: start: 20060606

REACTIONS (4)
  - Glomerulonephritis chronic [Not Recovered/Not Resolved]
  - Tubulointerstitial nephritis [Unknown]
  - Renal impairment [Unknown]
  - Nephrolithiasis [Unknown]
